FAERS Safety Report 9671434 (Version 1)
Quarter: 2013Q4

REPORT INFORMATION
  Report Type: Spontaneous
  Country: US (occurrence: None)
  Receive Date: 20131105
  Receipt Date: 20131105
  Transmission Date: 20140711
  Serious: Yes (Other)
  Sender: FDA-Public Use
  Company Number: None

PATIENT
  Age: 71 Year
  Sex: Female
  Weight: 72.58 kg

DRUGS (2)
  1. LEVAQUIN [Suspect]
     Indication: OSTEOMYELITIS
     Dosage: 1 TABLET ONCE DAILY
     Route: 048
     Dates: start: 20100303, end: 20100308
  2. LEVAQUIN [Suspect]
     Indication: SINUSITIS
     Dosage: 1 TABLET ONCE DAILY
     Route: 048
     Dates: start: 20100303, end: 20100308

REACTIONS (4)
  - Myalgia [None]
  - Muscle spasms [None]
  - Muscular weakness [None]
  - Drug ineffective [None]
